FAERS Safety Report 21895780 (Version 1)
Quarter: 2023Q1

REPORT INFORMATION
  Report Type: Spontaneous
  Country: CN (occurrence: CN)
  Receive Date: 20230123
  Receipt Date: 20230123
  Transmission Date: 20230417
  Serious: Yes (Hospitalization, Other)
  Sender: FDA-Public Use
  Company Number: None

PATIENT
  Age: 63 Year
  Sex: Male
  Weight: 56.5 kg

DRUGS (4)
  1. CYCLOPHOSPHAMIDE [Suspect]
     Active Substance: CYCLOPHOSPHAMIDE
     Indication: Plasma cell myeloma
     Dosage: 400 MG, QD, DILUTED WITH NS 500ML
     Route: 042
     Dates: start: 20221230, end: 20221230
  2. SODIUM CHLORIDE [Suspect]
     Active Substance: SODIUM CHLORIDE
     Indication: Medication dilution
     Dosage: 500 ML, QD, USED TO DILUTE 400 MG CYCLOPHOSPHAMIDE
     Route: 042
     Dates: start: 20221230, end: 20221230
  3. SODIUM CHLORIDE [Suspect]
     Active Substance: SODIUM CHLORIDE
     Dosage: 2 ML, 2 TIMES IN 7 DAYS, USED TO DILUTE 1.9 MG BORTEZOMIB
     Route: 058
     Dates: start: 20221225, end: 20230104
  4. BORTEZOMIB [Suspect]
     Active Substance: BORTEZOMIB
     Indication: Plasma cell myeloma
     Dosage: 1.9 MG, 2 TIMES IN 7 DAYS, DILUTED WITH NS 2ML
     Route: 058
     Dates: start: 20221225, end: 20230104

REACTIONS (1)
  - Thrombocytopenia [Recovering/Resolving]

NARRATIVE: CASE EVENT DATE: 20221231
